FAERS Safety Report 9216392 (Version 2)
Quarter: 2013Q2

REPORT INFORMATION
  Report Type: Spontaneous
  Country: BR (occurrence: BR)
  Receive Date: 20130408
  Receipt Date: 20130611
  Transmission Date: 20140414
  Serious: No
  Sender: FDA-Public Use
  Company Number: PHHY2013BR033561

PATIENT
  Sex: Female
  Weight: 60 kg

DRUGS (5)
  1. RITALINA [Suspect]
     Indication: ATTENTION DEFICIT/HYPERACTIVITY DISORDER
     Dosage: 5 DF, DAILY
     Route: 048
  2. RITALINA [Suspect]
     Indication: DEPENDENCE
  3. RITALINA [Suspect]
     Indication: OFF LABEL USE
  4. RITALIN LA [Suspect]
     Dosage: 2 DF, DAILY
     Route: 048
  5. SYNTHROID [Concomitant]
     Indication: THYROID DISORDER
     Dosage: 1 DF, DAILY
     Route: 048

REACTIONS (2)
  - Therapeutic response unexpected [Unknown]
  - Tremor [Recovered/Resolved]
